FAERS Safety Report 9753288 (Version 2)
Quarter: 2013Q4

REPORT INFORMATION
  Report Type: Spontaneous
  Country: US (occurrence: US)
  Receive Date: 20131213
  Receipt Date: 20131216
  Transmission Date: 20140711
  Serious: Yes (Other)
  Sender: FDA-Public Use
  Company Number: US-TEVA-402809USA

PATIENT
  Age: 32 Year
  Sex: Female
  Weight: 53.12 kg

DRUGS (1)
  1. PARAGARD 380A [Suspect]
     Indication: CONTRACEPTION
     Route: 015
     Dates: start: 20120814, end: 20130429

REACTIONS (6)
  - Device dislocation [Not Recovered/Not Resolved]
  - Vulvovaginal pruritus [Unknown]
  - Metrorrhagia [Not Recovered/Not Resolved]
  - Metrorrhagia [Not Recovered/Not Resolved]
  - Menorrhagia [Not Recovered/Not Resolved]
  - Vulvovaginal discomfort [Recovered/Resolved]
